FAERS Safety Report 20686825 (Version 1)
Quarter: 2022Q2

REPORT INFORMATION
  Report Type: Spontaneous
  Country: FR (occurrence: FR)
  Receive Date: 20220407
  Receipt Date: 20220407
  Transmission Date: 20220720
  Serious: Yes (Other)
  Sender: FDA-Public Use
  Company Number: FR-SANOFI-01041199

PATIENT
  Age: 66 Year
  Sex: Female

DRUGS (2)
  1. KEVZARA [Suspect]
     Active Substance: SARILUMAB
     Dosage: DRUG STRUCTURE DOSAGE: DRUG INTERVAL DOSAGE: 1 ADMINISTRATION EVERY 15 DAYS DRUG TREATMENT DURATION:
  2. ESOMEPRAZOLE [Concomitant]
     Active Substance: ESOMEPRAZOLE
     Dosage: UNK

REACTIONS (7)
  - Diabetes mellitus [Unknown]
  - Abdominal pain [Unknown]
  - Abscess oral [Unknown]
  - Weight decreased [Unknown]
  - Fatigue [Unknown]
  - Unevaluable event [Unknown]
  - Product use issue [Unknown]
